FAERS Safety Report 5638850-6 (Version None)
Quarter: 2008Q1

REPORT INFORMATION
  Report Type: 
  Country: None (occurrence: None)
  Receive Date: 20080226
  Receipt Date: 20080215
  Transmission Date: 20080703
  Serious: Yes (Hospitalization, Other)
  Sender: FDA-Public Use
  Company Number: US-MERCK-0802USA02801

PATIENT
  Age: 54 Year
  Sex: Female

DRUGS (5)
  1. FOSAMAX [Suspect]
     Indication: OSTEOPOROSIS
     Route: 048
     Dates: start: 19960101
  2. FOSAMAX [Suspect]
     Route: 048
  3. ZETIA [Concomitant]
     Route: 048
  4. IMITREX [Concomitant]
     Indication: HEADACHE
     Route: 065
  5. CITRACAL CAPLETS + D [Concomitant]
     Route: 065

REACTIONS (9)
  - ANAEMIA [None]
  - ANKLE FRACTURE [None]
  - FALL [None]
  - FEMUR FRACTURE [None]
  - FRACTURE NONUNION [None]
  - HAEMORRHAGE [None]
  - IMPAIRED HEALING [None]
  - OVARIAN DISORDER [None]
  - URINARY TRACT INFECTION [None]
